FAERS Safety Report 5952174-9 (Version None)
Quarter: 2008Q4

REPORT INFORMATION
  Report Type: 
  Country: None (occurrence: None)
  Receive Date: 20081113
  Receipt Date: 20080807
  Transmission Date: 20090506
  Serious: No
  Sender: FDA-Public Use
  Company Number: A0741588A

PATIENT
  Age: 64 Year
  Sex: Male

DRUGS (2)
  1. COREG [Suspect]
     Indication: ARRHYTHMIA
     Dosage: 6.25MG TWICE PER DAY
     Route: 048
     Dates: start: 20061101
  2. COUMADIN [Concomitant]

REACTIONS (4)
  - MALAISE [None]
  - NEUTROPHIL COUNT DECREASED [None]
  - PYREXIA [None]
  - WHITE BLOOD CELL COUNT DECREASED [None]
